FAERS Safety Report 7064441-9 (Version None)
Quarter: 2010Q4

REPORT INFORMATION
  Report Type: 
  Country: None (occurrence: None)
  Receive Date: 20101027
  Receipt Date: 20101018
  Transmission Date: 20110411
  Serious: Yes (Life-Threatening, Other)
  Sender: FDA-Public Use
  Company Number: PHHY2009JP38492

PATIENT
  Sex: Female
  Weight: 40 kg

DRUGS (19)
  1. EXJADE [Suspect]
     Indication: MYELODYSPLASTIC SYNDROME
     Dosage: 500 MG DAILY
     Route: 048
     Dates: start: 20081015
  2. EXJADE [Suspect]
     Indication: IRON OVERLOAD
     Dosage: 500 MG DAILY
     Route: 048
     Dates: start: 20081101
  3. FLUVASTATIN [Suspect]
     Dosage: 20 MG DAILY
     Route: 048
     Dates: start: 20081015, end: 20081208
  4. PRIMOBOLAN [Concomitant]
     Indication: MYELODYSPLASTIC SYNDROME
     Dosage: 30 MG, UNK
     Route: 048
     Dates: start: 20081015, end: 20091014
  5. PRIMOBOLAN [Concomitant]
     Dosage: 15 MG
     Route: 048
     Dates: start: 20081015, end: 20091014
  6. ALOSITOL [Concomitant]
     Dosage: 100 MG, UNK
     Route: 048
     Dates: start: 20081015, end: 20091014
  7. LASIX [Concomitant]
     Dosage: 20 MG, UNK
     Route: 048
     Dates: start: 20081015, end: 20091014
  8. ALDACTONE [Concomitant]
     Dosage: 25 MG, UNK
     Route: 048
     Dates: start: 20081015, end: 20081124
  9. ARTIST [Concomitant]
     Dosage: 5 MG, UNK
     Route: 048
     Dates: start: 20081015, end: 20091014
  10. PROPOFOL [Concomitant]
     Dosage: 700 MG, UNK
     Route: 042
     Dates: start: 20081023, end: 20081024
  11. OMEPRAL [Concomitant]
     Dosage: 40 MG, UNK
     Route: 042
     Dates: start: 20081023, end: 20081024
  12. MIRACLID [Concomitant]
     Dosage: 300 KIU
     Route: 042
     Dates: start: 20081023, end: 20081023
  13. RED BLOOD CELLS, CONCENTRATED [Concomitant]
     Dosage: UNK
     Dates: start: 20040405, end: 20081014
  14. RED CELLS CONCENTRATES LEUKOCYTE REDUCED (RCC-LR) [Concomitant]
     Dosage: AT A DOSE OF 2 UNITS EVERY WEEK
     Dates: start: 20081014, end: 20090407
  15. RED CELLS CONCENTRATES LEUKOCYTE REDUCED (RCC-LR) [Concomitant]
     Dosage: 2 UNITS EVERY 7-10 DAYS
     Dates: start: 20090417, end: 20091006
  16. INSULIN [Concomitant]
     Indication: DIABETES MELLITUS
  17. LANTUS [Concomitant]
     Dosage: 9 DF
     Dates: start: 20090415, end: 20091014
  18. EPADEL [Concomitant]
     Dosage: 1800 MG
     Route: 048
     Dates: start: 20090415, end: 20091014
  19. FASTIC [Concomitant]
     Dosage: 90 MG
     Route: 042
     Dates: start: 20090707, end: 20091014

REACTIONS (13)
  - ALANINE AMINOTRANSFERASE INCREASED [None]
  - ASPARTATE AMINOTRANSFERASE INCREASED [None]
  - BLOOD ALKALINE PHOSPHATASE INCREASED [None]
  - BLOOD CREATININE INCREASED [None]
  - BODY TEMPERATURE DECREASED [None]
  - DEMENTIA [None]
  - DIABETES MELLITUS [None]
  - GAMMA-GLUTAMYLTRANSFERASE INCREASED [None]
  - HYPOGLYCAEMIC COMA [None]
  - MALIGNANT NEOPLASM PROGRESSION [None]
  - PLATELET COUNT DECREASED [None]
  - SERUM FERRITIN INCREASED [None]
  - WHITE BLOOD CELL COUNT DECREASED [None]
